FAERS Safety Report 5056183-6 (Version None)
Quarter: 2006Q3

REPORT INFORMATION
  Report Type: 
  Country: None (occurrence: None)
  Receive Date: 20060714
  Receipt Date: 20060626
  Transmission Date: 20061208
  Serious: Yes (Hospitalization, Other)
  Sender: FDA-Public Use
  Company Number: US200606003652

PATIENT
  Age: 65 Year
  Sex: Male
  Weight: 66.8 kg

DRUGS (9)
  1. FORTEO [Suspect]
     Indication: OSTEOPOROSIS
     Dosage: 20 UG
     Dates: start: 20041001
  2. FORTEO PEN (FORTEO PEN) [Concomitant]
  3. INDERAL [Concomitant]
  4. FLOVENT [Concomitant]
  5. ARICEPT /JPN/ (DONEPEZIL HYDROCHLORIDE) [Concomitant]
  6. WELLBUTRIN [Concomitant]
  7. LIPITOR [Concomitant]
  8. LASIX [Concomitant]
  9. ALUPENT [Concomitant]

REACTIONS (2)
  - FALL [None]
  - HIP FRACTURE [None]
